FAERS Safety Report 23809810 (Version 2)
Quarter: 2024Q2

REPORT INFORMATION
  Report Type: Spontaneous
  Country: DE (occurrence: DE)
  Receive Date: 20240502
  Receipt Date: 20240529
  Transmission Date: 20240715
  Serious: Yes (Other)
  Sender: FDA-Public Use
  Company Number: DE-VERTEX PHARMACEUTICALS-2024-007403

PATIENT
  Age: 4 Year
  Sex: Male

DRUGS (4)
  1. ELEXACAFTOR\IVACAFTOR\TEZACAFTOR [Suspect]
     Active Substance: ELEXACAFTOR\IVACAFTOR\TEZACAFTOR
     Indication: Cystic fibrosis
     Dosage: GRANULES (60 MG IVA/ 40 MG TEZA/ 80 MG ELEXA) IN THE AM
     Route: 048
     Dates: start: 20240108, end: 202402
  2. ELEXACAFTOR\IVACAFTOR\TEZACAFTOR [Suspect]
     Active Substance: ELEXACAFTOR\IVACAFTOR\TEZACAFTOR
     Dosage: (75 MG IVA/ 50 MG TEZA/ 100 MG ELEXA) IN THE AM
     Route: 048
     Dates: start: 20240227
  3. KALYDECO [Suspect]
     Active Substance: IVACAFTOR
     Indication: Cystic fibrosis
     Dosage: 1 TAB (59.5 MG IVA) IN THE PM
     Route: 048
     Dates: start: 20240108, end: 202402
  4. KALYDECO [Suspect]
     Active Substance: IVACAFTOR
     Dosage: 1 TAB (75 MG IVA) IN THE PM
     Route: 048
     Dates: start: 20240227

REACTIONS (2)
  - Intracranial pressure increased [Not Recovered/Not Resolved]
  - Papilloedema [Not Recovered/Not Resolved]

NARRATIVE: CASE EVENT DATE: 20240307
